FAERS Safety Report 6684382-6 (Version None)
Quarter: 2010Q2

REPORT INFORMATION
  Report Type: 
  Country: None (occurrence: None)
  Receive Date: 20100416
  Receipt Date: 20100407
  Transmission Date: 20101027
  Serious: Yes (Hospitalization, Other)
  Sender: FDA-Public Use
  Company Number: CHPA2010US06374

PATIENT
  Age: 52 Year
  Sex: Male

DRUGS (1)
  1. VOLTAREN [Suspect]
     Indication: BACK PAIN
     Dosage: UNK, UNK
     Route: 061
     Dates: start: 20090101, end: 20091101

REACTIONS (6)
  - DRUG ADMINISTERED AT INAPPROPRIATE SITE [None]
  - MYOCARDIAL INFARCTION [None]
  - OFF LABEL USE [None]
  - SKIN GRAFT [None]
  - THERAPEUTIC RESPONSE UNEXPECTED [None]
  - THERMAL BURN [None]
